FAERS Safety Report 7430582-7 (Version None)
Quarter: 2011Q2

REPORT INFORMATION
  Report Type: 
  Country: None (occurrence: None)
  Receive Date: 20110421
  Receipt Date: 20100709
  Transmission Date: 20111010
  Serious: No
  Sender: FDA-Public Use
  Company Number: US-ASTRAZENECA-2010SE32204

PATIENT
  Sex: Male

DRUGS (2)
  1. METOPROLOL SUCCINATE [Suspect]
     Route: 048
     Dates: start: 20100101
  2. METOPROLOL SUCCINATE [Suspect]
     Route: 048
     Dates: end: 20100101

REACTIONS (2)
  - BLOOD PRESSURE INCREASED [None]
  - ANGINA PECTORIS [None]
